FAERS Safety Report 5460977-2 (Version None)
Quarter: 2007Q3

REPORT INFORMATION
  Report Type: 
  Country: None (occurrence: None)
  Receive Date: 20070822
  Receipt Date: 20060815
  Transmission Date: 20080115
  Serious: Yes (Hospitalization, Disabling, Other)
  Sender: FDA-Public Use
  Company Number: 2006099523

PATIENT
  Age: 87 Year
  Sex: Female

DRUGS (5)
  1. NORVASC [Suspect]
     Indication: ANGINA PECTORIS
     Dosage: 5 MG (5 MG, 1 IN1 D)
     Dates: start: 20060601
  2. ATACAND [Suspect]
     Indication: ANGINA PECTORIS
     Dosage: 6 MG (6 MG, 1 IN 1 D); FOR YEARS
  3. PLAVIX [Suspect]
     Indication: ANGINA PECTORIS
     Dosage: 75 MG (75 MG, 1 IN 1 D)
     Dates: start: 20060601
  4. SYNTHROID [Concomitant]
  5. CHOLESTEROL- AND TRIGLYCERIDE REDUCERS (CHOLESTEROL AND TRIGLYCERIDE R [Concomitant]

REACTIONS (3)
  - DRUG INTERACTION [None]
  - FRUSTRATION [None]
  - MUSCLE SPASMS [None]
